FAERS Safety Report 5008319-0 (Version None)
Quarter: 2006Q2

REPORT INFORMATION
  Report Type: 
  Country: None (occurrence: None)
  Receive Date: 20060523
  Receipt Date: 20060508
  Transmission Date: 20061013
  Serious: Yes (Other)
  Sender: FDA-Public Use
  Company Number: FR-JNJFOC-20060502897

PATIENT
  Sex: Female

DRUGS (3)
  1. RISPERDAL CONSTA [Suspect]
     Indication: DRUG USE FOR UNKNOWN INDICATION
     Route: 030
  2. EFFERALGAN [Concomitant]
     Route: 065
  3. MORPHINE [Concomitant]
     Route: 065

REACTIONS (1)
  - LOCKED-IN SYNDROME [None]
